FAERS Safety Report 16237466 (Version 1)
Quarter: 2019Q2

REPORT INFORMATION
  Report Type: Report from Study
  Country: IT (occurrence: IT)
  Receive Date: 20190425
  Receipt Date: 20190425
  Transmission Date: 20190711
  Serious: Yes (Hospitalization)
  Sender: FDA-Public Use
  Company Number: IT-MYLANLABS-2019M1037571

PATIENT
  Age: 89 Year
  Sex: Female

DRUGS (6)
  1. ALLOPURINOL. [Concomitant]
     Active Substance: ALLOPURINOL
     Indication: GOUT
     Dosage: 1 DOSAGE FORM, QD
     Route: 048
  2. CLODY [Concomitant]
     Active Substance: CLODRONATE DISODIUM
     Indication: OSTEOPOROSIS
     Dosage: 1 DOSAGE FORM, QW
     Route: 030
  3. LEVOFLOXACIN. [Suspect]
     Active Substance: LEVOFLOXACIN
     Indication: INFECTION
     Dosage: 1 DOSAGE FORM, QD
     Route: 048
     Dates: start: 20181110, end: 20181110
  4. RAMIPRIL. [Concomitant]
     Active Substance: RAMIPRIL
     Indication: HYPERTENSION
     Dosage: 1 DOSAGE FORM, QD
     Route: 048
  5. SIMVASTATIN. [Concomitant]
     Active Substance: SIMVASTATIN
     Indication: HYPERCHOLESTEROLAEMIA
     Dosage: 1 DOSAGE FORM, QD
     Route: 048
  6. LASIX [Concomitant]
     Active Substance: FUROSEMIDE
     Indication: HYPERTENSION
     Dosage: 1 DOSAGE FORM
     Route: 048

REACTIONS (2)
  - Vertigo [Unknown]
  - Erythema [Unknown]

NARRATIVE: CASE EVENT DATE: 20181110
